FAERS Safety Report 11836543 (Version 3)
Quarter: 2018Q2

REPORT INFORMATION
  Report Type: Spontaneous
  Country: GB (occurrence: GB)
  Receive Date: 20151215
  Receipt Date: 20180627
  Transmission Date: 20180711
  Serious: Yes (Hospitalization)
  Sender: FDA-Public Use
  Company Number: GB-TEVA-615505ACC

PATIENT
  Age: 77 Year
  Sex: Male
  Weight: 78 kg

DRUGS (17)
  1. MABTHERA [Suspect]
     Active Substance: RITUXIMAB
     Indication: DIFFUSE LARGE B-CELL LYMPHOMA
     Dosage: SINGLE
     Route: 042
     Dates: start: 20150820, end: 20150917
  2. OMEPRAZOLE. [Concomitant]
     Active Substance: OMEPRAZOLE
     Indication: GASTROINTESTINAL HAEMORRHAGE
     Dosage: 40 MILLIGRAM DAILY;
     Route: 048
     Dates: end: 20150928
  3. DIGOXIN. [Concomitant]
     Active Substance: DIGOXIN
     Indication: AORTIC VALVE REPLACEMENT
     Route: 048
     Dates: end: 20150928
  4. LEFLUNOMIDE. [Concomitant]
     Active Substance: LEFLUNOMIDE
     Indication: RHEUMATOID ARTHRITIS
     Dosage: 20 MILLIGRAM DAILY;
     Route: 048
     Dates: start: 201107, end: 20150928
  5. INOTUZUMAB OZOGAMICIN [Suspect]
     Active Substance: INOTUZUMAB OZOGAMICIN
     Indication: DIFFUSE LARGE B-CELL LYMPHOMA
     Dosage: 0.96  MG/ML, SINGLE, DATE OF LAST DOSE PRIOR TO SAE: 18/ SEP/2015
     Route: 042
     Dates: start: 20150821, end: 20150918
  6. FILGRASTIM [Concomitant]
     Active Substance: FILGRASTIM
     Indication: PROPHYLAXIS OF NAUSEA AND VOMITING
     Dosage: 300 MILLIGRAM DAILY;
     Route: 058
     Dates: start: 20150823, end: 20150928
  7. METOCLOPRAMIDE. [Concomitant]
     Active Substance: METOCLOPRAMIDE
     Indication: PROPHYLAXIS OF NAUSEA AND VOMITING
     Dosage: 10-20 MG AS NEEDED
     Route: 048
     Dates: start: 20150820
  8. ASPIRIN. [Concomitant]
     Active Substance: ASPIRIN
     Indication: AORTIC VALVE REPLACEMENT
     Dosage: 75 MILLIGRAM DAILY; ENTERIC COATED
     Route: 048
     Dates: end: 20150928
  9. VINCRISTINE [Suspect]
     Active Substance: VINCRISTINE
     Indication: DIFFUSE LARGE B-CELL LYMPHOMA
     Dosage: SINGLE
     Route: 042
     Dates: start: 20150820, end: 20150917
  10. CHLORPHENIRAMINE. [Concomitant]
     Active Substance: CHLORPHENIRAMINE
     Indication: PROPHYLAXIS
     Dosage: SINGLE
     Route: 042
     Dates: start: 20150820, end: 20150917
  11. FLUCONAZOLE. [Concomitant]
     Active Substance: FLUCONAZOLE
     Indication: ANTIFUNGAL PROPHYLAXIS
     Dosage: 50 MILLIGRAM DAILY;
     Route: 048
     Dates: start: 20150815, end: 20150928
  12. PREDNISOLONE. [Suspect]
     Active Substance: PREDNISOLONE
     Indication: DIFFUSE LARGE B-CELL LYMPHOMA
     Dosage: 100 MILLIGRAM DAILY;
     Route: 048
     Dates: start: 20150820, end: 20150921
  13. HYDROXYCHLOROQUINE [Concomitant]
     Active Substance: HYDROXYCHLOROQUINE
     Indication: RHEUMATOID ARTHRITIS
     Dosage: 400 MILLIGRAM DAILY;
     Route: 048
     Dates: end: 20150928
  14. ONDANSETRON [Concomitant]
     Active Substance: ONDANSETRON
     Indication: PROPHYLAXIS OF NAUSEA AND VOMITING
     Dosage: SINGLE
     Route: 048
     Dates: start: 20150820, end: 20150917
  15. CYCLOPHOSPHAMIDE. [Suspect]
     Active Substance: CYCLOPHOSPHAMIDE
     Indication: DIFFUSE LARGE B-CELL LYMPHOMA
     Dosage: SINGLE
     Route: 042
     Dates: start: 20150820, end: 20150917
  16. ALLOPURINOL. [Concomitant]
     Active Substance: ALLOPURINOL
     Indication: PROPHYLAXIS
     Dosage: 300 MILLIGRAM DAILY;
     Route: 048
     Dates: start: 20150815, end: 20150927
  17. FUROSEMIDE. [Concomitant]
     Active Substance: FUROSEMIDE
     Indication: FLUID OVERLOAD
     Dosage: 40 MILLIGRAM DAILY;
     Route: 048
     Dates: start: 20150927, end: 20150929

REACTIONS (2)
  - Infection [Recovered/Resolved]
  - Influenza like illness [Recovered/Resolved]

NARRATIVE: CASE EVENT DATE: 20150928
